FAERS Safety Report 11772683 (Version 1)
Quarter: 2015Q4

REPORT INFORMATION
  Report Type: Spontaneous
  Country: US (occurrence: US)
  Receive Date: 20151124
  Receipt Date: 20151124
  Transmission Date: 20160304
  Serious: Yes (Other)
  Sender: FDA-Public Use
  Company Number: US-MALLINCKRODT-T201500028

PATIENT
  Sex: Female

DRUGS (1)
  1. GABLOFEN [Suspect]
     Active Substance: BACLOFEN
     Indication: MUSCLE SPASTICITY
     Dosage: 250 MCG/DAY
     Route: 037

REACTIONS (6)
  - Device connection issue [Recovered/Resolved]
  - Muscle spasticity [Recovered/Resolved]
  - Dysphagia [Unknown]
  - Drug withdrawal syndrome [Recovered/Resolved]
  - Cerebrospinal fluid leakage [Recovered/Resolved]
  - Device issue [Recovered/Resolved]
